FAERS Safety Report 12301950 (Version 1)
Quarter: 2016Q2

REPORT INFORMATION
  Report Type: Spontaneous
  Country: US (occurrence: US)
  Receive Date: 20160425
  Receipt Date: 20160425
  Transmission Date: 20160815
  Serious: No
  Sender: FDA-Public Use
  Company Number: US-GLAXOSMITHKLINE-US2016055034

PATIENT
  Sex: Male

DRUGS (2)
  1. TEA TREE OIL [Suspect]
     Active Substance: TEA TREE OIL
     Indication: MUSCLE INJURY
     Dosage: UNK UNK, U
  2. VOLTAREN [Suspect]
     Active Substance: DICLOFENAC SODIUM
     Indication: MUSCLE INJURY
     Dosage: UNK UNK, U
     Route: 061
     Dates: start: 20160404

REACTIONS (5)
  - Condition aggravated [Unknown]
  - Drug interaction [Unknown]
  - Drug ineffective for unapproved indication [Unknown]
  - Drug prescribing error [Unknown]
  - Product use issue [Unknown]

NARRATIVE: CASE EVENT DATE: 20160404
